FAERS Safety Report 10705743 (Version 1)
Quarter: 2015Q1

REPORT INFORMATION
  Report Type: Spontaneous
  Country: BR (occurrence: BR)
  Receive Date: 20150112
  Receipt Date: 20150112
  Transmission Date: 20150721
  Serious: Yes (Other)
  Sender: FDA-Public Use
  Company Number: BR-AMGEN-BRASP2015000986

PATIENT
  Age: 61 Year
  Sex: Male
  Weight: 74 kg

DRUGS (4)
  1. VECTIBIX [Suspect]
     Active Substance: PANITUMUMAB
     Indication: GASTROINTESTINAL NEOPLASM
     Dosage: 420 MG, EVERY 14 DAYS
     Route: 065
     Dates: start: 2013
  2. INSULIN [Concomitant]
     Active Substance: INSULIN NOS
     Indication: DIABETES MELLITUS
     Dosage: 40 IU, IN THE MORNING, SINCE 20 YEARS
  3. VECTIBIX [Suspect]
     Active Substance: PANITUMUMAB
     Indication: METASTASES TO LIVER
  4. INSULIN [Concomitant]
     Active Substance: INSULIN NOS
     Dosage: 20 IU, BY NIGHT, SINCE 20 YEARS

REACTIONS (2)
  - Metastases to liver [Unknown]
  - Rash pustular [Unknown]
